FAERS Safety Report 9264235 (Version 1)
Quarter: 2013Q2

REPORT INFORMATION
  Report Type: Spontaneous
  Country: US (occurrence: US)
  Receive Date: 20130430
  Receipt Date: 20130430
  Transmission Date: 20140414
  Serious: Yes (Other)
  Sender: FDA-Public Use
  Company Number: CHPA2013US001815

PATIENT
  Age: 65 Year
  Sex: Female

DRUGS (1)
  1. BENEFIBER UNKNOWN [Suspect]
     Indication: NUTRITIONAL SUPPLEMENTATION
     Dosage: 3 TSP, QD
     Route: 048
     Dates: start: 2007

REACTIONS (6)
  - Foot fracture [Unknown]
  - Influenza [Not Recovered/Not Resolved]
  - Sinus headache [Recovering/Resolving]
  - Disease recurrence [Recovering/Resolving]
  - Dizziness [Not Recovered/Not Resolved]
  - Incorrect dose administered [Unknown]
